FAERS Safety Report 25548267 (Version 1)
Quarter: 2025Q3

REPORT INFORMATION
  Report Type: Report from Study
  Country: US (occurrence: US)
  Receive Date: 20250714
  Receipt Date: 20250714
  Transmission Date: 20251020
  Serious: Yes (Life-Threatening, Disabling, Other)
  Sender: ALEXION PHARMACEUTICALS
  Company Number: US-AstraZeneca-CH-00907632A

PATIENT
  Sex: Female

DRUGS (1)
  1. DAPAGLIFLOZIN [Suspect]
     Active Substance: DAPAGLIFLOZIN
     Route: 065

REACTIONS (6)
  - Pulmonary embolism [Unknown]
  - Myocardial infarction [Unknown]
  - Anaphylactic shock [Unknown]
  - Product use issue [Unknown]
  - Disability [Unknown]
  - Coma [Unknown]
